FAERS Safety Report 4531864-9 (Version None)
Quarter: 2004Q4

REPORT INFORMATION
  Report Type: 
  Country: None (occurrence: None)
  Receive Date: 20041220
  Receipt Date: 20041210
  Transmission Date: 20050328
  Serious: Yes (Death)
  Sender: FDA-Public Use
  Company Number: CA-JNJFOC-20041202907

PATIENT
  Age: 46 Year
  Sex: Male

DRUGS (1)
  1. DURAGESIC [Suspect]
     Indication: DRUG USE FOR UNKNOWN INDICATION
     Route: 049

REACTIONS (4)
  - GASTROINTESTINAL HAEMORRHAGE [None]
  - INTENTIONAL MISUSE [None]
  - PERFORATED ULCER [None]
  - VOMITING [None]
